FAERS Safety Report 9160241 (Version 2)
Quarter: 2013Q1

REPORT INFORMATION
  Report Type: Spontaneous
  Country: BR (occurrence: BR)
  Receive Date: 20130313
  Receipt Date: 20130320
  Transmission Date: 20140127
  Serious: Yes (Other)
  Sender: FDA-Public Use
  Company Number: BR-ROCHE-1200511

PATIENT
  Sex: Female
  Weight: 67 kg

DRUGS (2)
  1. XELODA [Suspect]
     Indication: BREAST CANCER
     Route: 065
     Dates: start: 20130308, end: 20130308
  2. CLONAZEPAM [Concomitant]

REACTIONS (3)
  - Anaphylactic reaction [Recovered/Resolved]
  - Periorbital oedema [Recovered/Resolved]
  - Erythema [Recovered/Resolved]
